FAERS Safety Report 15121281 (Version 2)
Quarter: 2025Q2

REPORT INFORMATION
  Report Type: Spontaneous
  Country: FR (occurrence: FR)
  Receive Date: 20180709
  Receipt Date: 20250408
  Transmission Date: 20250716
  Serious: Yes (Other)
  Sender: AUROBINDO
  Company Number: FR-AUROBINDO-AUR-APL-2018-034628

PATIENT

DRUGS (2)
  1. PREDNISONE [Suspect]
     Active Substance: PREDNISONE
     Indication: Graft versus host disease
     Route: 065
  2. RUXOLITINIB [Suspect]
     Active Substance: RUXOLITINIB
     Indication: Graft versus host disease
     Dosage: 20 MILLIGRAM, ONCE A DAY (10 MG, BID)
     Route: 065

REACTIONS (4)
  - Infection [Unknown]
  - Treatment failure [Unknown]
  - Therapy non-responder [Unknown]
  - Product use in unapproved indication [Unknown]
